FAERS Safety Report 7424562-5 (Version None)
Quarter: 2011Q2

REPORT INFORMATION
  Report Type: 
  Country: None (occurrence: None)
  Receive Date: 20110419
  Receipt Date: 20110415
  Transmission Date: 20111010
  Serious: Yes (Other)
  Sender: FDA-Public Use
  Company Number: US-PFIZER INC-2011059803

PATIENT
  Sex: Male
  Weight: 102 kg

DRUGS (10)
  1. WARFARIN [Concomitant]
     Dosage: UNK
  2. GLUCOSAMINE [Concomitant]
     Indication: ARTHROPATHY
     Dosage: UNK
  3. GABAPENTIN [Concomitant]
     Dosage: UNK
  4. ATENOLOL [Concomitant]
     Dosage: UNK
  5. DIGOXIN [Concomitant]
     Dosage: UNK
  6. LISINOPRIL [Concomitant]
     Dosage: UNK
  7. TRIAZOLAM [Suspect]
     Indication: SLEEP DISORDER
     Dosage: UNK
     Route: 048
  8. FUROSEMIDE [Concomitant]
     Indication: CARDIAC DISORDER
     Dosage: UNK
  9. ISOSORBIDE [Concomitant]
     Dosage: UNK
  10. ALLOPURINOL [Concomitant]
     Dosage: UNK

REACTIONS (3)
  - WEIGHT DECREASED [None]
  - PANCREATIC DISORDER [None]
  - POOR QUALITY SLEEP [None]
